FAERS Safety Report 17728378 (Version 3)
Quarter: 2020Q2

REPORT INFORMATION
  Report Type: Spontaneous
  Country: GR (occurrence: GR)
  Receive Date: 20200430
  Receipt Date: 20200515
  Transmission Date: 20200714
  Serious: Yes (Death, Life-Threatening, Hospitalization, Other)
  Sender: FDA-Public Use
  Company Number: GR-SA-2020SA111164

PATIENT
  Age: 5 Year
  Sex: Male

DRUGS (9)
  1. THIOTEPA. [Suspect]
     Active Substance: THIOTEPA
     Indication: BONE MARROW CONDITIONING REGIMEN
     Dosage: 10 MG/KG, TOTAL, 5 MG/KGX2 FOR ONE DAY
  2. THIOTEPA. [Suspect]
     Active Substance: THIOTEPA
     Indication: ALLOGENIC STEM CELL TRANSPLANTATION
  3. FLUDARABINE PHOSPHATE. [Suspect]
     Active Substance: FLUDARABINE PHOSPHATE
     Indication: ALLOGENIC STEM CELL TRANSPLANTATION
  4. FLUDARABINE PHOSPHATE. [Suspect]
     Active Substance: FLUDARABINE PHOSPHATE
     Indication: BONE MARROW CONDITIONING REGIMEN
     Dosage: 30 MG/M2; FOR FIVE CONSECUTIVE DAYS
  5. BUSULFAN. [Suspect]
     Active Substance: BUSULFAN
     Indication: BONE MARROW CONDITIONING REGIMEN
     Dosage: 1.1 MG/KG, FOR FOUR CONSECUTIVE DAYS
  6. BUSULFAN. [Suspect]
     Active Substance: BUSULFAN
     Indication: ALLOGENIC STEM CELL TRANSPLANTATION
  7. ANTI-THYMOCYTE GLOBULIN (RABBIT) NOS [Suspect]
     Active Substance: LAPINE T-LYMPHOCYTE IMMUNE GLOBULIN
     Indication: PROPHYLAXIS AGAINST GRAFT VERSUS HOST DISEASE
     Dosage: 7.5 MG/KG, TOTAL, ON DAY 1
  8. CICLOSPORIN [Suspect]
     Active Substance: CYCLOSPORINE
     Indication: PROPHYLAXIS AGAINST GRAFT VERSUS HOST DISEASE
     Dosage: DAY 3
  9. METHOTREXATE. [Suspect]
     Active Substance: METHOTREXATE
     Indication: PROPHYLAXIS AGAINST GRAFT VERSUS HOST DISEASE
     Dosage: D1, D3, AND D6

REACTIONS (16)
  - Off label use [Unknown]
  - BK virus infection [Unknown]
  - Dysuria [Unknown]
  - Toxoplasmosis [Fatal]
  - Cerebral toxoplasmosis [Fatal]
  - Cerebral calcification [Fatal]
  - Pyrexia [Fatal]
  - Respiratory failure [Fatal]
  - Febrile neutropenia [Recovered/Resolved]
  - Cystitis viral [Unknown]
  - Aphasia [Fatal]
  - Mucosal inflammation [Recovered/Resolved]
  - Nystagmus [Fatal]
  - Altered state of consciousness [Fatal]
  - Disseminated toxoplasmosis [Fatal]
  - Acute respiratory distress syndrome [Fatal]
